FAERS Safety Report 23730266 (Version 1)
Quarter: 2024Q2

REPORT INFORMATION
  Report Type: Spontaneous
  Country: US (occurrence: None)
  Receive Date: 20240411
  Receipt Date: 20240411
  Transmission Date: 20240716
  Serious: No
  Sender: FDA-Public Use
  Company Number: 2024A086784

PATIENT
  Sex: Female

DRUGS (1)
  1. DUAKLIR PRESSAIR [Suspect]
     Active Substance: ACLIDINIUM BROMIDE\FORMOTEROL FUMARATE

REACTIONS (2)
  - Taste disorder [Unknown]
  - Parosmia [Unknown]
